FAERS Safety Report 6648560-4 (Version None)
Quarter: 2010Q1

REPORT INFORMATION
  Report Type: 
  Country: None (occurrence: None)
  Receive Date: 20100324
  Receipt Date: 20100310
  Transmission Date: 20100710
  Serious: Yes (Other)
  Sender: FDA-Public Use
  Company Number: IT-BAYER-201019211GPV

PATIENT
  Age: 51 Year
  Sex: Male

DRUGS (3)
  1. DACARBAZINE [Suspect]
     Indication: MEDULLOBLASTOMA
     Dosage: FOR 6 CYCLES
     Route: 065
     Dates: start: 20050101, end: 20050101
  2. ETOPOSIDE [Suspect]
     Indication: MEDULLOBLASTOMA
     Dosage: FOR 6 CYCLES
     Route: 065
     Dates: start: 20050101, end: 20050101
  3. CISPLATIN [Suspect]
     Indication: MEDULLOBLASTOMA
     Dosage: FOR 6 CYCLES
     Route: 065
     Dates: start: 20050101, end: 20050101

REACTIONS (1)
  - NEUROTOXICITY [None]
